FAERS Safety Report 4780628-X (Version None)
Quarter: 2005Q3

REPORT INFORMATION
  Report Type: 
  Country: None (occurrence: None)
  Receive Date: 20050926
  Receipt Date: 20050913
  Transmission Date: 20060218
  Serious: Yes (Other)
  Sender: FDA-Public Use
  Company Number: 2005127181

PATIENT
  Sex: Male

DRUGS (3)
  1. ZYRTEC [Suspect]
     Indication: HYPERSENSITIVITY
     Dosage: ORAL
     Route: 048
     Dates: start: 20030101, end: 20050101
  2. ZYRTEC-D 12 HOUR [Suspect]
     Indication: HYPERSENSITIVITY
     Dosage: 2 IN 1 D
     Dates: start: 20050101
  3. CLARITIN [Suspect]
     Indication: HYPERSENSITIVITY

REACTIONS (3)
  - DRUG INEFFECTIVE [None]
  - ECONOMIC PROBLEM [None]
  - TONSILLECTOMY [None]
